FAERS Safety Report 24998985 (Version 1)
Quarter: 2025Q1

REPORT INFORMATION
  Report Type: Spontaneous
  Country: AT (occurrence: AT)
  Receive Date: 20250222
  Receipt Date: 20250222
  Transmission Date: 20250409
  Serious: No
  Sender: SANOFI AVENTIS
  Company Number: AT-SA-2025SA050085

PATIENT

DRUGS (1)
  1. DUPIXENT [Suspect]
     Active Substance: DUPILUMAB
     Indication: Dermatitis atopic
     Dosage: 300 MG, QOW

REACTIONS (3)
  - Eczema nummular [Not Recovered/Not Resolved]
  - Skin infection [Not Recovered/Not Resolved]
  - Therapeutic response decreased [Unknown]
